FAERS Safety Report 8890765 (Version 3)
Quarter: 2012Q4

REPORT INFORMATION
  Report Type: Report from Study
  Country: DE (occurrence: DE)
  Receive Date: 20121106
  Receipt Date: 20121116
  Transmission Date: 20130627
  Serious: Yes (Other)
  Sender: FDA-Public Use
  Company Number: DE-VERTEX PHARMACEUTICAL INC.-2012-024147

PATIENT
  Sex: Female
  Weight: 65 kg

DRUGS (3)
  1. INCIVO [Suspect]
     Indication: HEPATITIS C
     Dosage: Dosage Form: Tablet
     Route: 048
     Dates: start: 20111108, end: 20120207
  2. INTERFERON [Concomitant]
     Dosage: Dosage Form: Unspecified
     Dates: start: 20111108, end: 20120909
  3. RIBAVIRIN [Concomitant]
     Dates: start: 20111108, end: 20120909

REACTIONS (5)
  - Oral fungal infection [Recovered/Resolved]
  - Gingival bleeding [Recovered/Resolved]
  - Aggression [Recovered/Resolved]
  - Mouth injury [Recovered/Resolved]
  - Swelling face [Recovered/Resolved]
